FAERS Safety Report 9197700 (Version 2)
Quarter: 2013Q4

REPORT INFORMATION
  Report Type: Spontaneous
  Country: GB (occurrence: GB)
  Receive Date: 20130328
  Receipt Date: 20131010
  Transmission Date: 20140711
  Serious: Yes (Other)
  Sender: FDA-Public Use
  Company Number: GB-TEVA-394201ISR

PATIENT
  Age: 75 Year
  Sex: Female
  Weight: 68 kg

DRUGS (3)
  1. DOXAZOSIN [Suspect]
     Indication: HYPERTENSION
     Dosage: 1 DOSAGE FORMS DAILY; CAN^T REMEMBER STRENGTH
     Dates: start: 20081127, end: 20110221
  2. CO-CODAMOL [Concomitant]
     Indication: BACK PAIN
     Dosage: TWO-FOUR 30MG CODEINE PHOSPHATE/500MG PARACETAMOL TABLETS DAILY
     Dates: start: 20081205, end: 20121015
  3. GABAPENTIN [Concomitant]
     Dates: start: 20081205, end: 20121015

REACTIONS (2)
  - Bladder disorder [Recovered/Resolved]
  - Urinary incontinence [Recovered/Resolved]
